FAERS Safety Report 25275485 (Version 3)
Quarter: 2025Q3

REPORT INFORMATION
  Report Type: Report from Study
  Country: CA (occurrence: CA)
  Receive Date: 20250506
  Receipt Date: 20250717
  Transmission Date: 20251020
  Serious: Yes (Other)
  Sender: SANDOZ
  Company Number: CA-SANDOZ-SDZ2025CA028066

PATIENT
  Sex: Female

DRUGS (1)
  1. HYRIMOZ [Suspect]
     Active Substance: ADALIMUMAB-ADAZ
     Indication: Rheumatoid arthritis
     Dosage: 40 MG, Q2W
     Route: 058
     Dates: start: 20240830

REACTIONS (5)
  - Shoulder operation [Unknown]
  - Arthropathy [Unknown]
  - Illness [Unknown]
  - Arthralgia [Unknown]
  - Procedural pain [Unknown]

NARRATIVE: CASE EVENT DATE: 20250101
